FAERS Safety Report 7096469-7 (Version None)
Quarter: 2010Q4

REPORT INFORMATION
  Report Type: 
  Country: None (occurrence: None)
  Receive Date: 20101109
  Receipt Date: 20101109
  Transmission Date: 20110411
  Serious: Yes (Hospitalization, Other)
  Sender: FDA-Public Use
  Company Number: None

PATIENT
  Age: 48 Day
  Sex: Male
  Weight: 78.9259 kg

DRUGS (1)
  1. RISPERIDONE [Suspect]
     Indication: SCHIZOAFFECTIVE DISORDER
     Dosage: 2MG 1 PER DAY PO
     Route: 048
     Dates: start: 20101021, end: 20101023

REACTIONS (6)
  - CONFUSIONAL STATE [None]
  - DISTURBANCE IN ATTENTION [None]
  - DRY MOUTH [None]
  - HEADACHE [None]
  - HEART RATE INCREASED [None]
  - TREMOR [None]
